FAERS Safety Report 14509512 (Version 3)
Quarter: 2018Q1

REPORT INFORMATION
  Report Type: Spontaneous
  Country: JP (occurrence: JP)
  Receive Date: 20180209
  Receipt Date: 20180326
  Transmission Date: 20180509
  Serious: Yes (Other)
  Sender: FDA-Public Use
  Company Number: JP-009507513-1703JPN000346J

PATIENT
  Age: 72 Year
  Sex: Male
  Weight: 52 kg

DRUGS (10)
  1. KEYTRUDA [Suspect]
     Active Substance: PEMBROLIZUMAB
     Indication: LUNG ADENOCARCINOMA
     Dosage: 200 MG, Q3W
     Route: 041
     Dates: start: 20170228, end: 20170712
  2. OXINORM (OXYCODONE HYDROCHLORIDE) [Concomitant]
     Active Substance: OXYCODONE HYDROCHLORIDE
     Indication: LUNG ADENOCARCINOMA
     Dosage: 2.5 MG, PRN
     Route: 048
  3. LYRICA [Concomitant]
     Active Substance: PREGABALIN
     Indication: LUNG ADENOCARCINOMA
     Dosage: 75.0 MG, BID
     Route: 048
  4. OXIFAST [Concomitant]
     Active Substance: OXYCODONE
     Indication: LUNG ADENOCARCINOMA
     Dosage: 1.2 ML, QD
     Route: 051
     Dates: start: 20170302, end: 20170323
  5. LIXIANA [Concomitant]
     Active Substance: EDOXABAN TOSYLATE
     Dosage: 30.0 MG, QD
     Route: 048
  6. NEXIUM [Concomitant]
     Active Substance: ESOMEPRAZOLE MAGNESIUM
     Indication: PROPHYLAXIS
     Dosage: 20.0 MG, QD
     Route: 048
  7. RANMARK [Suspect]
     Active Substance: DENOSUMAB
     Indication: LUNG ADENOCARCINOMA
     Dosage: 120.0 MG, QD
     Route: 051
     Dates: start: 20170228
  8. AMLODIPINE [Concomitant]
     Active Substance: AMLODIPINE BESYLATE
     Dosage: 2.5 MG, QD
     Route: 048
  9. LOXOPROFEN [Concomitant]
     Active Substance: LOXOPROFEN
     Indication: LUNG ADENOCARCINOMA
     Dosage: 60.0 MG, TID
     Route: 048
  10. MAGNESIUM OXIDE. [Concomitant]
     Active Substance: MAGNESIUM OXIDE
     Dosage: 500.0 MG, TID
     Route: 048

REACTIONS (7)
  - Cystitis [Recovered/Resolved]
  - Hypocalcaemia [Recovered/Resolved]
  - Tinea infection [Recovered/Resolved]
  - Constipation [Recovered/Resolved]
  - Urinary retention [Not Recovered/Not Resolved]
  - Skin erosion [Recovering/Resolving]
  - Dry eye [Recovered/Resolved]

NARRATIVE: CASE EVENT DATE: 20170306
